FAERS Safety Report 23966191 (Version 1)
Quarter: 2024Q2

REPORT INFORMATION
  Report Type: Other
  Country: FR (occurrence: None)
  Receive Date: 20240612
  Receipt Date: 20240612
  Transmission Date: 20240716
  Serious: Yes (Death, Other)
  Sender: FDA-Public Use
  Company Number: FR-ROCHE-3579795

PATIENT

DRUGS (5)
  1. ATEZOLIZUMAB [Suspect]
     Active Substance: ATEZOLIZUMAB
     Indication: Non-small cell lung cancer
     Route: 065
  2. BEVACIZUMAB [Suspect]
     Active Substance: BEVACIZUMAB
     Indication: Non-small cell lung cancer
     Route: 065
  3. PEMETREXED [Suspect]
     Active Substance: PEMETREXED
     Indication: Non-small cell lung cancer
     Route: 065
  4. CARBOPLATIN [Suspect]
     Active Substance: CARBOPLATIN
     Indication: Non-small cell lung cancer
     Dosage: AUC 5
     Route: 065
  5. CISPLATIN [Suspect]
     Active Substance: CISPLATIN
     Indication: Non-small cell lung cancer
     Dosage: ONCE EVERY 3 WEEKS
     Route: 065

REACTIONS (53)
  - Respiratory distress [Fatal]
  - Septic shock [Fatal]
  - Sudden death [Fatal]
  - Hyperthyroidism [Unknown]
  - Hypothyroidism [Unknown]
  - Hepatic cytolysis [Unknown]
  - Myocarditis [Unknown]
  - Nephritis [Unknown]
  - Immune-mediated lung disease [Unknown]
  - Hypertension [Unknown]
  - Central nervous system haemorrhage [Unknown]
  - Eye disorder [Unknown]
  - Neutropenia [Unknown]
  - Asthenia [Unknown]
  - Renal failure [Unknown]
  - Anaemia [Unknown]
  - Nausea [Unknown]
  - Vomiting [Unknown]
  - Appetite disorder [Unknown]
  - Constipation [Unknown]
  - Respiration abnormal [Unknown]
  - Musculoskeletal pain [Unknown]
  - Thrombocytopenia [Unknown]
  - Diarrhoea [Unknown]
  - Hepatocellular injury [Unknown]
  - Hepatitis [Unknown]
  - Hepatic function abnormal [Unknown]
  - White blood cell disorder [Unknown]
  - Cough [Unknown]
  - Headache [Unknown]
  - Pain [Unknown]
  - Renal impairment [Unknown]
  - Rash [Unknown]
  - Gastrointestinal pain [Unknown]
  - Abdominal pain [Unknown]
  - Pyrexia [Unknown]
  - Nasal disorder [Unknown]
  - Oedema [Unknown]
  - Lacrimation disorder [Unknown]
  - Arthropathy [Unknown]
  - Upper respiratory tract infection [Unknown]
  - Mouth ulceration [Unknown]
  - Mucosal disorder [Unknown]
  - Pruritus [Unknown]
  - Anxiety [Unknown]
  - Cholestasis [Unknown]
  - Jaundice [Unknown]
  - Eye infection [Unknown]
  - Eyelid infection [Unknown]
  - Leukopenia [Unknown]
  - Paraesthesia [Unknown]
  - Dysaesthesia [Unknown]
  - Urinary tract disorder [Unknown]
